FAERS Safety Report 10921262 (Version 1)
Quarter: 2015Q1

REPORT INFORMATION
  Report Type: Spontaneous
  Country: US (occurrence: US)
  Receive Date: 20150317
  Receipt Date: 20150317
  Transmission Date: 20150721
  Serious: No
  Sender: FDA-Public Use
  Company Number: US-ASTRAZENECA-2015SE21540

PATIENT
  Age: 21753 Day
  Sex: Male

DRUGS (3)
  1. BYDUREON [Suspect]
     Active Substance: EXENATIDE
     Indication: TYPE 2 DIABETES MELLITUS
     Route: 058
     Dates: start: 20150209
  2. JANUTADUETO [Concomitant]
     Indication: TYPE 2 DIABETES MELLITUS
     Dosage: 2.51, BID
     Route: 065
  3. UNKNOWN [Concomitant]
     Active Substance: UNSPECIFIED INGREDIENT
     Indication: TYPE 2 DIABETES MELLITUS

REACTIONS (3)
  - Skin injury [Unknown]
  - Injection site haemorrhage [Unknown]
  - Underdose [Unknown]
